FAERS Safety Report 7385304-5 (Version None)
Quarter: 2011Q1

REPORT INFORMATION
  Report Type: 
  Country: None (occurrence: None)
  Receive Date: 20110330
  Receipt Date: 20100527
  Transmission Date: 20110831
  Serious: No
  Sender: FDA-Public Use
  Company Number: US-MYLANLABS-2010S1009611

PATIENT
  Age: 55 Year
  Sex: Female

DRUGS (9)
  1. PERCOCET [Concomitant]
     Indication: PAIN
  2. FROVA [Concomitant]
     Indication: MIGRAINE
  3. KLONOPIN [Concomitant]
  4. EMSAM [Suspect]
     Indication: DEPRESSION
     Dosage: CHANGES PATCHES QD
     Route: 062
     Dates: start: 20090501
  5. PROPRANOLOL [Concomitant]
  6. AMBIEN [Concomitant]
  7. ABILIFY [Concomitant]
     Dates: start: 20100401
  8. METHADONE [Concomitant]
     Indication: PAIN
  9. SOMA [Concomitant]

REACTIONS (2)
  - DRUG EFFECT DECREASED [None]
  - DEPRESSION [None]
